FAERS Safety Report 7163003-2 (Version None)
Quarter: 2010Q4

REPORT INFORMATION
  Report Type: 
  Country: None (occurrence: None)
  Receive Date: 20101215
  Receipt Date: 20100208
  Transmission Date: 20110411
  Serious: Yes (Other)
  Sender: FDA-Public Use
  Company Number: MA-PFIZER INC-2010015922

PATIENT
  Age: 70 Year
  Sex: Female

DRUGS (1)
  1. LYRICA [Suspect]
     Indication: CERVICAL ROOT PAIN
     Dosage: 75 MG, 2X/DAY

REACTIONS (1)
  - LOSS OF CONSCIOUSNESS [None]
